FAERS Safety Report 20517776 (Version 2)
Quarter: 2022Q2

REPORT INFORMATION
  Report Type: Spontaneous
  Country: US (occurrence: None)
  Receive Date: 20220225
  Receipt Date: 20220407
  Transmission Date: 20220720
  Serious: Yes (Other)
  Sender: FDA-Public Use
  Company Number: 2022A078233

PATIENT
  Age: 945 Month
  Sex: Female

DRUGS (2)
  1. SYMBICORT [Suspect]
     Active Substance: BUDESONIDE\FORMOTEROL FUMARATE DIHYDRATE
     Indication: Asthma
     Dosage: 80/4.5 MCG TWO PUFFS TWICE A DAY
     Route: 055
     Dates: start: 202101
  2. ALBUTEROL [Concomitant]
     Active Substance: ALBUTEROL

REACTIONS (12)
  - Pulmonary congestion [Not Recovered/Not Resolved]
  - Hypersensitivity [Unknown]
  - Back disorder [Not Recovered/Not Resolved]
  - Total lung capacity abnormal [Not Recovered/Not Resolved]
  - Oxygen consumption decreased [Not Recovered/Not Resolved]
  - Oral disorder [Recovered/Resolved]
  - Mouth swelling [Recovered/Resolved]
  - Lip swelling [Recovered/Resolved]
  - Coating in mouth [Recovered/Resolved]
  - Wheezing [Not Recovered/Not Resolved]
  - Product dose omission issue [Not Recovered/Not Resolved]
  - Device malfunction [Unknown]

NARRATIVE: CASE EVENT DATE: 20211201
